FAERS Safety Report 5647523-5 (Version None)
Quarter: 2008Q1

REPORT INFORMATION
  Report Type: 
  Country: None (occurrence: None)
  Receive Date: 20080303
  Receipt Date: 20080222
  Transmission Date: 20080703
  Serious: Yes (Hospitalization)
  Sender: FDA-Public Use
  Company Number: BR-WYE-H02729008

PATIENT
  Sex: Female
  Weight: 68 kg

DRUGS (5)
  1. EFFEXOR [Suspect]
     Indication: ANXIETY
     Route: 048
     Dates: start: 20070301, end: 20070901
  2. ATORVASTATIN CALCIUM [Concomitant]
     Dates: start: 20040101, end: 20070901
  3. OMEPRAZOLE [Concomitant]
     Dosage: OCCASIONALLY
     Dates: end: 20070901
  4. VARENICLINE [Interacting]
     Indication: EX-SMOKER
     Route: 048
     Dates: start: 20070816, end: 20070922
  5. NOVALGINA [Concomitant]
     Dosage: OCCASIONALLY
     Dates: end: 20070901

REACTIONS (10)
  - ALANINE AMINOTRANSFERASE INCREASED [None]
  - ASPARTATE AMINOTRANSFERASE INCREASED [None]
  - DRUG ERUPTION [None]
  - DRUG INTERACTION [None]
  - HAEMATURIA [None]
  - MYALGIA [None]
  - NAUSEA [None]
  - PYREXIA [None]
  - SKIN LESION [None]
  - VASCULITIS [None]
